FAERS Safety Report 6441818-3 (Version None)
Quarter: 2009Q4

REPORT INFORMATION
  Report Type: 
  Country: None (occurrence: None)
  Receive Date: 20091116
  Receipt Date: 20091110
  Transmission Date: 20100525
  Serious: Yes (Other)
  Sender: FDA-Public Use
  Company Number: US-BRACCO-001113

PATIENT
  Sex: Female

DRUGS (3)
  1. MULTIHANCE [Suspect]
     Indication: NUCLEAR MAGNETIC RESONANCE IMAGING
     Route: 042
     Dates: start: 20080512, end: 20080512
  2. MULTIHANCE [Suspect]
     Indication: BREAST CANCER
     Route: 042
     Dates: start: 20080512, end: 20080512
  3. IMMUNOSUPPRESSANTS [Concomitant]

REACTIONS (1)
  - RENAL IMPAIRMENT [None]
